FAERS Safety Report 20889947 (Version 1)
Quarter: 2022Q2

REPORT INFORMATION
  Report Type: Report from Study
  Country: CA (occurrence: CA)
  Receive Date: 20220530
  Receipt Date: 20220530
  Transmission Date: 20220721
  Serious: Yes (Other)
  Sender: FDA-Public Use
  Company Number: CA-SAMSUNG BIOEPIS-SB-2022-12544

PATIENT
  Age: 56 Year
  Sex: Female

DRUGS (1)
  1. ETANERCEPT [Suspect]
     Active Substance: ETANERCEPT
     Indication: Psoriatic arthropathy
     Dosage: 50 MG/ML
     Route: 065
     Dates: start: 20220412

REACTIONS (4)
  - Immunosuppression [Unknown]
  - Psoriatic arthropathy [Not Recovered/Not Resolved]
  - Ear infection [Recovered/Resolved]
  - Product substitution issue [Not Recovered/Not Resolved]
